FAERS Safety Report 16591520 (Version 2)
Quarter: 2020Q4

REPORT INFORMATION
  Report Type: Spontaneous
  Country: DE (occurrence: DE)
  Receive Date: 20190718
  Receipt Date: 20201222
  Transmission Date: 20210113
  Serious: Yes (Hospitalization)
  Sender: FDA-Public Use
  Company Number: DE-PFIZER INC-2019302081

PATIENT
  Age: 80 Year
  Sex: Male
  Weight: 75 kg

DRUGS (8)
  1. DABIGATRAN [Concomitant]
     Active Substance: DABIGATRAN
     Dosage: 110 MG, 2X/DAY (1-0-1)
     Route: 048
  2. TELMISARTAN. [Concomitant]
     Active Substance: TELMISARTAN
     Dosage: 40 MG, 2X/DAY (1-0-1)
     Route: 048
  3. ATORVASTATIN CALCIUM. [Suspect]
     Active Substance: ATORVASTATIN CALCIUM
     Dosage: UNK (TABLETTEN)
  4. METOPROLOL. [Suspect]
     Active Substance: METOPROLOL
     Dosage: 95 MG, 2X/DAY (1-0-1)
     Route: 048
  5. LERCANIDIPINE [Suspect]
     Active Substance: LERCANIDIPINE
     Dosage: 10 MG, 2X/DAY (1-0-1)
     Route: 048
  6. HYDROCHLOROTHIAZID [Suspect]
     Active Substance: HYDROCHLOROTHIAZIDE
     Dosage: UNK
     Route: 048
  7. GLYCEROLTRINITRAT [Concomitant]
     Active Substance: NITROGLYCERIN
     Dosage: 0.4 MG, AS NEEDED (SPRAY)
     Route: 048
  8. TAMSULOSIN [Concomitant]
     Active Substance: TAMSULOSIN
     Dosage: 0.4 MG, 1X/DAY (1-0-0)
     Route: 048

REACTIONS (7)
  - Dizziness [Unknown]
  - Hypertension [Unknown]
  - Activated partial thromboplastin time prolonged [Unknown]
  - Blood sodium decreased [Unknown]
  - Haematocrit decreased [Unknown]
  - Glomerular filtration rate decreased [Unknown]
  - Tachycardia [Unknown]

NARRATIVE: CASE EVENT DATE: 20171126
